FAERS Safety Report 20500040 (Version 1)
Quarter: 2022Q1

REPORT INFORMATION
  Report Type: Other
  Country: PA (occurrence: None)
  Receive Date: 20220222
  Receipt Date: 20220222
  Transmission Date: 20220423
  Serious: Yes (Hospitalization)
  Sender: FDA-Public Use
  Company Number: PA-ROCHE-3031401

PATIENT
  Sex: Female

DRUGS (1)
  1. ENTRECTINIB [Suspect]
     Active Substance: ENTRECTINIB
     Indication: Product used for unknown indication
     Route: 065
     Dates: start: 20220211

REACTIONS (3)
  - Hyperuricaemia [Unknown]
  - Electrolyte imbalance [Unknown]
  - Renal failure [Unknown]
